FAERS Safety Report 14985730 (Version 1)
Quarter: 2018Q2

REPORT INFORMATION
  Report Type: Spontaneous
  Country: US (occurrence: US)
  Receive Date: 20180516
  Receipt Date: 20180516
  Transmission Date: 20180711
  Serious: Yes (Death, Hospitalization)
  Sender: FDA-Public Use
  Company Number: None

PATIENT
  Age: 31 Month
  Sex: Female
  Weight: 8.9 kg

DRUGS (25)
  1. DIPHENHYDRAMINE. [Concomitant]
     Active Substance: DIPHENHYDRAMINE
  2. EPINEPHRINE. [Concomitant]
     Active Substance: EPINEPHRINE
  3. GENTAMICIN. [Concomitant]
     Active Substance: GENTAMICIN
  4. VANCOMYCIN [Concomitant]
     Active Substance: VANCOMYCIN
  5. MEROPENEM. [Concomitant]
     Active Substance: MEROPENEM
  6. PANTOPRAZOLE [Concomitant]
     Active Substance: PANTOPRAZOLE
  7. VINCRISTINE SULFATE. [Suspect]
     Active Substance: VINCRISTINE SULFATE
     Dates: end: 20130530
  8. BACTRIM [Concomitant]
     Active Substance: SULFAMETHOXAZOLE\TRIMETHOPRIM
  9. VECURONIUM [Concomitant]
     Active Substance: VECURONIUM BROMIDE
  10. CISPLATIN. [Suspect]
     Active Substance: CISPLATIN
     Dates: end: 20130522
  11. ACYCLOVIR. [Concomitant]
     Active Substance: ACYCLOVIR
  12. MORPHINE [Concomitant]
     Active Substance: MORPHINE
  13. NYSTATIN. [Concomitant]
     Active Substance: NYSTATIN
  14. CYCLOPHOSPHAMIDE. [Suspect]
     Active Substance: CYCLOPHOSPHAMIDE
     Dates: end: 20130521
  15. METHOTREXATE. [Suspect]
     Active Substance: METHOTREXATE
     Dates: end: 20130516
  16. AMPICILLIN [Concomitant]
     Active Substance: AMPICILLIN
  17. GANCICLOVIR. [Concomitant]
     Active Substance: GANCICLOVIR
  18. METHYLPREDNISOLONE. [Concomitant]
     Active Substance: METHYLPREDNISOLONE
  19. ETOPOSIDE (VP-16) [Suspect]
     Active Substance: ETOPOSIDE
     Dates: end: 20130522
  20. CHLOROTHIAZIDE. [Concomitant]
     Active Substance: CHLOROTHIAZIDE
  21. FENTANYL. [Concomitant]
     Active Substance: FENTANYL
  22. FOSCARNET [Concomitant]
     Active Substance: FOSCARNET
  23. LABETALOL [Concomitant]
     Active Substance: LABETALOL\LABETALOL HYDROCHLORIDE
  24. LORAZEPAM. [Concomitant]
     Active Substance: LORAZEPAM
  25. VORICONAZOLE. [Concomitant]
     Active Substance: VORICONAZOLE

REACTIONS (6)
  - Bronchopulmonary aspergillosis [None]
  - Respiratory failure [None]
  - Bacterial sepsis [None]
  - Cytomegalovirus infection [None]
  - Upper respiratory tract infection [None]
  - Bone marrow failure [None]

NARRATIVE: CASE EVENT DATE: 20130619
